FAERS Safety Report 18756407 (Version 1)
Quarter: 2021Q1

REPORT INFORMATION
  Report Type: Spontaneous
  Country: CN (occurrence: CN)
  Receive Date: 20210119
  Receipt Date: 20210119
  Transmission Date: 20210419
  Serious: Yes (Other)
  Sender: FDA-Public Use
  Company Number: CN-PFIZER INC-2021031003

PATIENT
  Age: 61 Year
  Sex: Male
  Weight: 70 kg

DRUGS (3)
  1. OMEPRAZOLE SODIUM [Suspect]
     Active Substance: OMEPRAZOLE SODIUM
     Indication: ANTACID THERAPY
     Dosage: 80 MG, 2X/DAY
     Dates: start: 20201215, end: 20201229
  2. AMBROXOL [Suspect]
     Active Substance: AMBROXOL
     Indication: PRODUCTIVE COUGH
     Dosage: 30 MG, 3X/DAY
  3. MEROPENEM. [Suspect]
     Active Substance: MEROPENEM
     Indication: ANTI-INFECTIVE THERAPY
     Dosage: 1.0 (UNKNOWN UNIT), EVERY 8 HOURS

REACTIONS (7)
  - Myelosuppression [Unknown]
  - Haemoptysis [Unknown]
  - Pneumonia klebsiella [Unknown]
  - Blood pressure decreased [Recovered/Resolved]
  - Haematochezia [Unknown]
  - Oxygen saturation decreased [Unknown]
  - Bacterial infection [Unknown]

NARRATIVE: CASE EVENT DATE: 20201217
